FAERS Safety Report 5184906-4 (Version None)
Quarter: 2006Q4

REPORT INFORMATION
  Report Type: 
  Country: None (occurrence: None)
  Receive Date: 20061220
  Receipt Date: 20060508
  Transmission Date: 20070319
  Serious: No
  Sender: FDA-Public Use
  Company Number: US-GLAXOSMITHKLINE-A0604645A

PATIENT
  Age: 65 Year
  Sex: Female

DRUGS (2)
  1. NICODERM CQ [Suspect]
     Dates: start: 20060315, end: 20060411
  2. NICODERM CQ [Suspect]
     Dates: start: 20060411

REACTIONS (1)
  - WEIGHT INCREASED [None]
